FAERS Safety Report 5101590-6 (Version None)
Quarter: 2006Q3

REPORT INFORMATION
  Report Type: 
  Country: None (occurrence: None)
  Receive Date: 20060731
  Receipt Date: 20060623
  Transmission Date: 20061208
  Serious: No
  Sender: FDA-Public Use
  Company Number: 2006PV016253

PATIENT
  Age: 71 Year
  Sex: Male
  Weight: 127.0072 kg

DRUGS (5)
  1. BYETTA [Suspect]
     Indication: DIABETES MELLITUS NON-INSULIN-DEPENDENT
     Dosage: SEE IMAGE
     Route: 058
     Dates: start: 20060501, end: 20060501
  2. BYETTA [Suspect]
     Indication: DIABETES MELLITUS NON-INSULIN-DEPENDENT
     Dosage: SEE IMAGE
     Route: 058
     Dates: start: 20060522, end: 20060613
  3. BYETTA [Suspect]
     Indication: DIABETES MELLITUS NON-INSULIN-DEPENDENT
     Dosage: SEE IMAGE
     Route: 058
     Dates: start: 20060614
  4. AVANDIA [Concomitant]
  5. GLIMEPIRIDE [Concomitant]

REACTIONS (7)
  - ABDOMINAL DISTENSION [None]
  - ANOREXIA [None]
  - CONSTIPATION [None]
  - DYSPEPSIA [None]
  - FEELING ABNORMAL [None]
  - NAUSEA [None]
  - WEIGHT DECREASED [None]
